FAERS Safety Report 6999556-4 (Version None)
Quarter: 2010Q3

REPORT INFORMATION
  Report Type: 
  Country: None (occurrence: None)
  Receive Date: 20100920
  Receipt Date: 20070615
  Transmission Date: 20110219
  Serious: Yes (Hospitalization, Other)
  Sender: FDA-Public Use
  Company Number: US-ASTRAZENECA-2006UW24584

PATIENT
  Age: 53 Year
  Sex: Male
  Weight: 120.7 kg

DRUGS (12)
  1. SEROQUEL [Suspect]
     Indication: SCHIZOPHRENIA
     Route: 048
     Dates: start: 20040805
  2. SEROQUEL [Suspect]
     Indication: DEPRESSION
     Route: 048
     Dates: start: 20040805
  3. SEROQUEL [Suspect]
     Dosage: 300 MG -400 MG
     Route: 048
     Dates: start: 20050308
  4. SEROQUEL [Suspect]
     Dosage: 300 MG -400 MG
     Route: 048
     Dates: start: 20050308
  5. CLOZARIL [Concomitant]
  6. ZYPREXA [Concomitant]
  7. GLYBURIDE [Concomitant]
     Dosage: 10 MG -20 MG
     Route: 048
     Dates: start: 20040416
  8. METFORMIN [Concomitant]
     Dates: start: 20040429
  9. CYMBALTA [Concomitant]
     Route: 048
     Dates: start: 20070123
  10. REMERON [Concomitant]
     Route: 048
     Dates: start: 20070123
  11. KLONOPIN [Concomitant]
     Route: 048
     Dates: start: 20040429
  12. ZOLOFT [Concomitant]
     Dates: start: 20050405

REACTIONS (3)
  - DIABETES MELLITUS [None]
  - NEUROLEPTIC MALIGNANT SYNDROME [None]
  - TYPE 2 DIABETES MELLITUS [None]
